FAERS Safety Report 9127149 (Version 1)
Quarter: 2013Q1

REPORT INFORMATION
  Report Type: Spontaneous
  Country: US (occurrence: US)
  Receive Date: 20130228
  Receipt Date: 20130228
  Transmission Date: 20140127
  Serious: Yes (Other)
  Sender: FDA-Public Use
  Company Number: US-PFIZER INC-2013068226

PATIENT
  Age: 72 Year
  Sex: Female
  Weight: 63.49 kg

DRUGS (5)
  1. PREMARIN [Suspect]
     Indication: VULVOVAGINAL DRYNESS
     Dosage: 0.625 MG, 1X/DAY
     Route: 048
     Dates: start: 1993
  2. PREMARIN [Suspect]
     Indication: HOT FLUSH
  3. PREMARIN [Suspect]
     Indication: OSTEOPOROSIS
  4. PREMARIN [Suspect]
     Indication: BONE DENSITY ABNORMAL
  5. CALCIUM WITH VITAMIN D [Concomitant]
     Dosage: UNK

REACTIONS (2)
  - Hypertension [Unknown]
  - Joint injury [Unknown]
